FAERS Safety Report 11094985 (Version 18)
Quarter: 2019Q1

REPORT INFORMATION
  Report Type: Spontaneous
  Country: US (occurrence: US)
  Receive Date: 20150506
  Receipt Date: 20190304
  Transmission Date: 20190417
  Serious: Yes (Hospitalization, Disabling, Other)
  Sender: FDA-Public Use
  Company Number: US-JAZZ-2014-US-013347

PATIENT
  Age: 34 Year
  Sex: Female
  Weight: 45.81 kg

DRUGS (35)
  1. XYREM [Suspect]
     Active Substance: SODIUM OXYBATE
     Dosage: 2.25G, BID
     Route: 048
     Dates: start: 200905, end: 200905
  2. XYREM [Suspect]
     Active Substance: SODIUM OXYBATE
     Dosage: 4.5G, BID
     Route: 048
     Dates: start: 200906, end: 2009
  3. DIHYDROERGOTAMINE [Concomitant]
     Active Substance: DIHYDROERGOTAMINE
     Indication: MIGRAINE
     Dosage: UNK, PRN
     Route: 030
  4. FENTANYL. [Concomitant]
     Active Substance: FENTANYL
     Indication: PAIN
     Dosage: 75 ?G, UNK
     Route: 061
     Dates: start: 20070202
  5. MORPHINE SULFATE. [Concomitant]
     Active Substance: MORPHINE SULFATE
     Indication: PAIN
     Dosage: 60 MG, PRN
     Route: 048
     Dates: start: 20130729
  6. METHYLPHENIDATE - SLOW RELEASE [Concomitant]
     Active Substance: METHYLPHENIDATE
     Indication: NARCOLEPSY
     Dosage: 20 MG, TID
     Route: 048
     Dates: start: 20130729
  7. XYREM [Suspect]
     Active Substance: SODIUM OXYBATE
     Indication: NARCOLEPSY
     Dosage: 1.5G, BID
     Route: 048
     Dates: start: 200803, end: 2008
  8. XYREM [Suspect]
     Active Substance: SODIUM OXYBATE
     Dosage: 4.5G, BID
     Route: 048
     Dates: start: 201402
  9. XYREM [Suspect]
     Active Substance: SODIUM OXYBATE
     Dosage: 3G, TID
     Route: 048
     Dates: start: 2014
  10. XYREM [Suspect]
     Active Substance: SODIUM OXYBATE
     Dosage: 3 G, TID
     Route: 048
  11. BACLOFEN. [Suspect]
     Active Substance: BACLOFEN
     Indication: PAIN
     Dosage: UNK
  12. FENTANYL. [Concomitant]
     Active Substance: FENTANYL
     Dosage: 75 ?G, UNK
     Route: 061
     Dates: start: 2014
  13. XYREM [Suspect]
     Active Substance: SODIUM OXYBATE
     Dosage: 4.5G, BID
     Route: 048
     Dates: start: 200911, end: 2009
  14. ZANAFLEX [Suspect]
     Active Substance: TIZANIDINE HYDROCHLORIDE
     Indication: TORTICOLLIS
     Dosage: 2-4 MG, PRN
     Route: 048
     Dates: start: 20010101
  15. FENTANYL. [Concomitant]
     Active Substance: FENTANYL
     Dosage: 100 ?G, UNK
     Dates: start: 2014
  16. METHADONE [Concomitant]
     Active Substance: METHADONE HYDROCHLORIDE
     Indication: PAIN
     Dosage: 20 MG, BID
     Route: 048
     Dates: start: 20130729
  17. PYRIDOSTIGMINE [Concomitant]
     Active Substance: PYRIDOSTIGMINE
     Indication: IMPAIRED GASTRIC EMPTYING
     Dosage: 60 MG, TID
     Route: 048
     Dates: start: 20131013
  18. DRONABINOL. [Concomitant]
     Active Substance: DRONABINOL
     Indication: PROPHYLAXIS
     Dosage: 2.5 MG, BID
     Route: 048
     Dates: start: 20130729
  19. NUVARING [Concomitant]
     Active Substance: ETHINYL ESTRADIOL\ETONOGESTREL
     Indication: DYSMENORRHOEA
  20. XYREM [Suspect]
     Active Substance: SODIUM OXYBATE
     Indication: CATAPLEXY
     Dosage: 2.25G, BID
     Route: 048
     Dates: start: 200812
  21. XYREM [Suspect]
     Active Substance: SODIUM OXYBATE
     Dosage: UNK
  22. PROPRANOLOL [Concomitant]
     Active Substance: PROPRANOLOL HYDROCHLORIDE
     Indication: RAPID EYE MOVEMENTS SLEEP ABNORMAL
     Dosage: 60 MG, QD
     Route: 048
     Dates: start: 20141013
  23. KLONOPIN [Concomitant]
     Active Substance: CLONAZEPAM
     Indication: PAIN
  24. CYCLOBENZAPRINE HCL [Concomitant]
     Active Substance: CYCLOBENZAPRINE HYDROCHLORIDE
     Indication: TORTICOLLIS
     Dosage: 10 MG, TID
     Route: 048
     Dates: start: 20130729
  25. METHYLPHENIDATE HYDROCHLORIDE. [Concomitant]
     Active Substance: METHYLPHENIDATE HYDROCHLORIDE
     Indication: NARCOLEPSY
     Dosage: 20 MG, PRN
     Route: 048
  26. XEOMIN [Concomitant]
     Active Substance: INCOBOTULINUMTOXINA
     Indication: PRODUCT USED FOR UNKNOWN INDICATION
     Dosage: UNK
     Dates: start: 20130728
  27. XYREM [Suspect]
     Active Substance: SODIUM OXYBATE
     Dosage: 4.5G, BID
     Route: 048
     Dates: start: 201307, end: 2013
  28. XYREM [Suspect]
     Active Substance: SODIUM OXYBATE
     Dosage: 4.5G, BID
     Route: 048
     Dates: start: 201309, end: 2013
  29. XYREM [Suspect]
     Active Substance: SODIUM OXYBATE
     Dosage: 4.5 G, BID
     Route: 048
  30. ADDERALL [Concomitant]
     Active Substance: AMPHETAMINE ASPARTATE\AMPHETAMINE SULFATE\DEXTROAMPHETAMINE SACCHARATE\DEXTROAMPHETAMINE SULFATE
     Indication: DEPRESSED LEVEL OF CONSCIOUSNESS
     Dosage: 20 MG, BID
     Route: 048
  31. ONDANSETRON HYDROCHLORIDE. [Concomitant]
     Active Substance: ONDANSETRON HYDROCHLORIDE
     Indication: NAUSEA
     Dosage: UNK
     Dates: start: 20130729
  32. XYREM [Suspect]
     Active Substance: SODIUM OXYBATE
     Dosage: UNKNOWN DOSE
     Route: 048
  33. TESTOSTERONE. [Suspect]
     Active Substance: TESTOSTERONE
     Indication: PRODUCT USED FOR UNKNOWN INDICATION
     Dosage: UNK
     Dates: end: 20170809
  34. KLONOPIN [Concomitant]
     Active Substance: CLONAZEPAM
     Indication: TORTICOLLIS
     Dosage: 0.5 MG, BID
     Route: 048
  35. KETOROLAC TROMETHAMINE. [Concomitant]
     Active Substance: KETOROLAC TROMETHAMINE
     Indication: MIGRAINE
     Dosage: 15.75 MG, PRN
     Route: 045

REACTIONS (33)
  - Post-traumatic neck syndrome [Unknown]
  - Muscle spasticity [Unknown]
  - Dehydration [Recovering/Resolving]
  - Sedation [Unknown]
  - Pain [Not Recovered/Not Resolved]
  - Surgery [Unknown]
  - Gait inability [Recovering/Resolving]
  - Adrenal insufficiency [Unknown]
  - Nerve injury [Unknown]
  - Speech disorder [Recovering/Resolving]
  - Wound dehiscence [Recovering/Resolving]
  - Post procedural complication [Unknown]
  - Hyperaldosteronism [Not Recovered/Not Resolved]
  - Somnolence [Unknown]
  - Fluid retention [Unknown]
  - Bradycardia [Recovering/Resolving]
  - Dyspnoea [Recovering/Resolving]
  - Stress [Unknown]
  - Hirsutism [Unknown]
  - Hypovitaminosis [Unknown]
  - Tissue expansion procedure [Unknown]
  - Cyst [Unknown]
  - Decreased appetite [Unknown]
  - Hypopituitarism [Unknown]
  - Hyponatraemia [Not Recovered/Not Resolved]
  - Disability [Unknown]
  - Impaired gastric emptying [Recovering/Resolving]
  - Muscle atrophy [Recovering/Resolving]
  - Neurogenic bladder [Not Recovered/Not Resolved]
  - Iron deficiency [Recovered/Resolved]
  - Vomiting [Recovering/Resolving]
  - Hypertonic bladder [Recovering/Resolving]
  - Therapeutic response decreased [Unknown]

NARRATIVE: CASE EVENT DATE: 201412
